FAERS Safety Report 11143679 (Version 2)
Quarter: 2015Q2

REPORT INFORMATION
  Report Type: Spontaneous
  Country: US (occurrence: US)
  Receive Date: 20150526
  Receipt Date: 20150603
  Transmission Date: 20150821
  Serious: No
  Sender: FDA-Public Use
  Company Number: US-UNITED THERAPEUTICS-UNT-2015-005092

PATIENT
  Age: 6 Year
  Sex: Female
  Weight: 19.48 kg

DRUGS (4)
  1. LETAIRIS [Concomitant]
     Active Substance: AMBRISENTAN
     Indication: PRODUCT USED FOR UNKNOWN INDICATION
  2. ADCIRCA [Concomitant]
     Active Substance: TADALAFIL
     Indication: PRODUCT USED FOR UNKNOWN INDICATION
  3. REMODULIN [Suspect]
     Active Substance: TREPROSTINIL
     Indication: PULMONARY HYPERTENSION
     Dosage: 0.059 ?G/KG, CONTINUING
     Route: 041
     Dates: start: 20130308
  4. REMODULIN [Suspect]
     Active Substance: TREPROSTINIL
     Dosage: 0.059 ?G/KG, CONTINUING
     Route: 041
     Dates: start: 20140514

REACTIONS (2)
  - Injection site irritation [Not Recovered/Not Resolved]
  - Upper respiratory tract infection [Recovered/Resolved]

NARRATIVE: CASE EVENT DATE: 201504
